FAERS Safety Report 18245183 (Version 4)
Quarter: 2020Q3

REPORT INFORMATION
  Report Type: Report from Study
  Country: ES (occurrence: ES)
  Receive Date: 20200908
  Receipt Date: 20200927
  Transmission Date: 20201103
  Serious: Yes (Hospitalization)
  Sender: FDA-Public Use
  Company Number: ES-ROCHE-2669446

PATIENT
  Age: 69 Year
  Sex: Male
  Weight: 62.9 kg

DRUGS (12)
  1. METOCLOPRAMIDE. [Concomitant]
     Active Substance: METOCLOPRAMIDE
     Indication: NAUSEA
     Dates: start: 20200829, end: 20200902
  2. ONDANSETRON [Concomitant]
     Active Substance: ONDANSETRON
     Indication: NAUSEA
     Dates: start: 20200902, end: 20200903
  3. PIPERACILINA ? TAZOBACTAM [Concomitant]
     Active Substance: PIPERACILLIN SODIUM\TAZOBACTAM SODIUM
     Indication: TUMOUR ASSOCIATED FEVER
     Dates: start: 20200830, end: 20200901
  4. DEXAMETHASONE. [Concomitant]
     Active Substance: DEXAMETHASONE
     Indication: TUMOUR PAIN
     Dates: end: 20200824
  5. SEVREDOL [Concomitant]
     Active Substance: MORPHINE
     Indication: TUMOUR PAIN
  6. PREGABALINA [Concomitant]
     Active Substance: PREGABALIN
     Indication: TUMOUR PAIN
  7. MORPHINE SULFATE. [Concomitant]
     Active Substance: MORPHINE SULFATE
     Indication: TUMOUR PAIN
     Dates: start: 20200821
  8. ATEZOLIZUMAB. [Suspect]
     Active Substance: ATEZOLIZUMAB
     Indication: METASTATIC NEOPLASM
     Dosage: DATE OF MOST RECENT DOSE OF ATEZOLIZUMAB PRIOR TO SERIOUS ADVERSE EVENT (SAE) WAS ON 18/AUG/2020 AT
     Route: 041
     Dates: start: 20200818
  9. RO7122290 (FAP?4?1BBL MAB) [Suspect]
     Active Substance: INVESTIGATIONAL PRODUCT
     Indication: METASTATIC NEOPLASM
     Dosage: DATE OF MOST RECENT DOSE OF RO7122290 PRIOR TO SERIOUS ADVERSE EVENT WAS ON 25/AUG/2020 AT 3:00 PM A
     Route: 041
     Dates: start: 20200818
  10. OMEPRAZOL [Concomitant]
     Active Substance: OMEPRAZOLE
  11. FENDIBINA [Concomitant]
     Indication: GASTROOESOPHAGEAL REFLUX DISEASE
  12. LEVOFLOXACINO [Concomitant]
     Active Substance: LEVOFLOXACIN
     Indication: TUMOUR ASSOCIATED FEVER
     Dates: start: 20200830, end: 20200905

REACTIONS (1)
  - Neutropenia [Recovered/Resolved]

NARRATIVE: CASE EVENT DATE: 20200829
